FAERS Safety Report 10762100 (Version 1)
Quarter: 2015Q1

REPORT INFORMATION
  Report Type: Report from Study
  Country: JP (occurrence: JP)
  Receive Date: 20150204
  Receipt Date: 20150204
  Transmission Date: 20150721
  Serious: Yes (Other)
  Sender: FDA-Public Use
  Company Number: JP-009507513-2011SP015623

PATIENT
  Age: 8 Day
  Sex: Female
  Weight: 1 kg

DRUGS (13)
  1. ALDACTONE [Concomitant]
     Active Substance: SPIRONOLACTONE
     Indication: PATENT DUCTUS ARTERIOSUS
     Dosage: 1 MG/KG, QD
     Route: 048
     Dates: start: 20101021, end: 20101026
  2. DIAZOXIDE [Suspect]
     Active Substance: DIAZOXIDE
     Indication: HYPOGLYCAEMIA
     Dosage: 8.3 MG, BID
     Route: 048
     Dates: start: 20101015, end: 20101016
  3. LASIX [Concomitant]
     Active Substance: FUROSEMIDE
     Dosage: 2 MG/KG, QD
     Route: 042
     Dates: start: 20101020, end: 20101020
  4. LASIX [Concomitant]
     Active Substance: FUROSEMIDE
     Indication: PATENT DUCTUS ARTERIOSUS
     Dosage: 1 MG/KG, QD
     Route: 048
     Dates: start: 20101021, end: 20101026
  5. DIAZOXIDE [Suspect]
     Active Substance: DIAZOXIDE
     Dosage: 6 MG, TID
     Route: 048
     Dates: start: 20101024, end: 20101025
  6. DIAZOXIDE [Suspect]
     Active Substance: DIAZOXIDE
     Dosage: 4 MG, BID
     Route: 048
     Dates: start: 20101027, end: 20101027
  7. INDACIN [Concomitant]
     Active Substance: INDOMETHACIN
     Indication: PATENT DUCTUS ARTERIOSUS
     Dosage: 0.2 MG/KG, QD
     Route: 042
     Dates: start: 20101018, end: 20101020
  8. DIAZOXIDE [Suspect]
     Active Substance: DIAZOXIDE
     Dosage: 4 MG, TID
     Route: 048
     Dates: start: 20101026, end: 20101026
  9. DIAZOXIDE [Suspect]
     Active Substance: DIAZOXIDE
     Dosage: UNK
  10. LASIX [Concomitant]
     Active Substance: FUROSEMIDE
     Indication: PATENT DUCTUS ARTERIOSUS
     Dosage: 1 MG/KG, QD
     Route: 042
     Dates: start: 20101019, end: 20101019
  11. DIAZOXIDE [Suspect]
     Active Substance: DIAZOXIDE
     Dosage: 8.3 MG, TID
     Route: 048
     Dates: start: 20101016, end: 20101023
  12. LASIX [Concomitant]
     Active Substance: FUROSEMIDE
     Dosage: 2 MG/KG, QD
     Route: 048
     Dates: start: 20101027, end: 20101102
  13. ALDACTONE [Concomitant]
     Active Substance: SPIRONOLACTONE
     Dosage: 2 MG/KG, QD
     Route: 048
     Dates: start: 20101027, end: 20101102

REACTIONS (5)
  - Patent ductus arteriosus [Recovered/Resolved]
  - Tachypnoea [Unknown]
  - Oedema [Unknown]
  - Hypertrichosis [Recovered/Resolved]
  - Cardiac failure [Recovered/Resolved]

NARRATIVE: CASE EVENT DATE: 20101017
